FAERS Safety Report 5839511-0 (Version None)
Quarter: 2008Q3

REPORT INFORMATION
  Report Type: 
  Country: None (occurrence: None)
  Receive Date: 20080807
  Receipt Date: 20080724
  Transmission Date: 20090109
  Serious: Yes (Other)
  Sender: FDA-Public Use
  Company Number: 2007S1000148

PATIENT
  Age: 55 Year
  Sex: Male
  Weight: 69.99 kg

DRUGS (2)
  1. SORIATANE [Suspect]
     Indication: PSORIASIS
     Dosage: 10 MG; QD; PO, ; PO
     Route: 048
  2. SORIATANE [Suspect]
     Indication: PSORIASIS
     Dosage: 10 MG; QD; PO, ; PO
     Route: 048

REACTIONS (2)
  - ARTHRALGIA [None]
  - OSTEOPOROSIS [None]
